FAERS Safety Report 7413282-9 (Version None)
Quarter: 2011Q2

REPORT INFORMATION
  Report Type: 
  Country: None (occurrence: None)
  Receive Date: 20110413
  Receipt Date: 20110330
  Transmission Date: 20111010
  Serious: Yes (Hospitalization, Other)
  Sender: FDA-Public Use
  Company Number: US-CELGENEUS-163-21880-11022946

PATIENT
  Sex: Male

DRUGS (4)
  1. COUMADIN [Suspect]
  2. REVLIMID [Suspect]
     Dosage: 25 MILLIGRAM
     Route: 048
     Dates: start: 20091201
  3. COUMADIN [Suspect]
     Route: 065
  4. QUININE SULFATE [Concomitant]
     Route: 065

REACTIONS (4)
  - DEEP VEIN THROMBOSIS [None]
  - MUSCLE SPASMS [None]
  - HAEMORRHAGE [None]
  - THROMBOSIS [None]
